FAERS Safety Report 22374780 (Version 7)
Quarter: 2023Q4

REPORT INFORMATION
  Report Type: Report from Study
  Country: US (occurrence: US)
  Receive Date: 20230526
  Receipt Date: 20231023
  Transmission Date: 20240110
  Serious: No
  Sender: FDA-Public Use
  Company Number: US-002147023-NVSC2023US121095

PATIENT
  Sex: Female

DRUGS (2)
  1. KISQALI [Suspect]
     Active Substance: RIBOCICLIB
     Indication: Breast cancer metastatic
     Dosage: 600 MG, TID
     Route: 048
  2. KISQALI [Suspect]
     Active Substance: RIBOCICLIB
     Dosage: UNK (UNKNOWN DOSE AND SCHEDULE CHANGE)
     Route: 065

REACTIONS (13)
  - Full blood count decreased [Unknown]
  - Oral pain [Unknown]
  - Eye pain [Unknown]
  - Insomnia [Unknown]
  - White blood cell count decreased [Unknown]
  - Illness [Unknown]
  - Urinary incontinence [Unknown]
  - Nausea [Unknown]
  - Constipation [Unknown]
  - Pruritus [Unknown]
  - Cough [Unknown]
  - Fatigue [Unknown]
  - Off label use [Unknown]
